FAERS Safety Report 6663172-4 (Version None)
Quarter: 2010Q2

REPORT INFORMATION
  Report Type: 
  Country: None (occurrence: None)
  Receive Date: 20100401
  Receipt Date: 20100323
  Transmission Date: 20101027
  Serious: Yes (Other)
  Sender: FDA-Public Use
  Company Number: US-ABBOTT-10P-163-0634185-00

PATIENT
  Age: 39 Year
  Sex: Female

DRUGS (3)
  1. DEPAKOTE [Suspect]
     Indication: BIPOLAR DISORDER
     Dates: end: 20091222
  2. DEPAKOTE ER [Suspect]
     Indication: BIPOLAR DISORDER
     Route: 048
     Dates: start: 20091201, end: 20100101
  3. DEPAKOTE ER [Suspect]
     Route: 048
     Dates: start: 20100101

REACTIONS (2)
  - COLECTOMY [None]
  - DRUG LEVEL DECREASED [None]
